FAERS Safety Report 13435095 (Version 2)
Quarter: 2017Q2

REPORT INFORMATION
  Report Type: Spontaneous
  Country: HU (occurrence: HU)
  Receive Date: 20170413
  Receipt Date: 20170612
  Transmission Date: 20170830
  Serious: Yes (Other)
  Sender: FDA-Public Use
  Company Number: HU-B.I. PHARMACEUTICALS,INC./RIDGEFIELD-2017-BI-017581

PATIENT
  Age: 65 Year
  Sex: Male
  Weight: 84 kg

DRUGS (2)
  1. PRAXBIND [Suspect]
     Active Substance: IDARUCIZUMAB
     Indication: SMALL INTESTINAL HAEMORRHAGE
  2. PRAXBIND [Suspect]
     Active Substance: IDARUCIZUMAB
     Indication: PROCOAGULANT THERAPY
     Route: 065

REACTIONS (3)
  - Off label use [Recovered/Resolved]
  - Acute kidney injury [Not Recovered/Not Resolved]
  - Renal tubular necrosis [Not Recovered/Not Resolved]

NARRATIVE: CASE EVENT DATE: 20170309
